FAERS Safety Report 8531673-X (Version None)
Quarter: 2012Q3

REPORT INFORMATION
  Report Type: 
  Country: None (occurrence: None)
  Receive Date: 20120711
  Receipt Date: 20120628
  Transmission Date: 20120928
  Serious: Yes (Other)
  Sender: FDA-Public Use
  Company Number: JP-2012-15682

PATIENT
  Age: 67 Year
  Sex: Male

DRUGS (14)
  1. DOBUTAMINE (DOBUTAMINE HYDROCHLORIDE) INJECTION [Concomitant]
  2. DIGOXIN [Concomitant]
  3. DOPAMINE HYDROCHLORIDE [Concomitant]
  4. XYLOCAINE (LIDOCAINE) INJECTION [Concomitant]
  5. LASIX [Concomitant]
  6. HEPARIN (HEPARIN SODIUM) INJECTION [Concomitant]
  7. HANP (CARPERITIDE) INJECTION [Concomitant]
  8. SAMSCA [Suspect]
     Indication: FLUID RETENTION
     Dosage: 7.5 MG MILLIGRAM(S), QAM, ORAL, 15 MG MILLIGRAM(S), QAM, ORAL
     Route: 048
     Dates: start: 20120414, end: 20120414
  9. SAMSCA [Suspect]
     Indication: FLUID RETENTION
     Dosage: 7.5 MG MILLIGRAM(S), QAM, ORAL, 15 MG MILLIGRAM(S), QAM, ORAL
     Route: 048
     Dates: start: 20120415, end: 20120421
  10. MAINTATE (BISOPLOL FUMARATE) TABLET [Concomitant]
  11. COVERSYL (PERINDOPRIL ERBUMINE) TABLET [Concomitant]
  12. MILRINONE (MILRINONE) INJECTION [Concomitant]
  13. ANCARON (AMIODARONE HYDROCHLORIDE) INJECTION [Concomitant]
  14. ALDACTONE [Concomitant]

REACTIONS (5)
  - SEPSIS [None]
  - FLUID RETENTION [None]
  - HYPERNATRAEMIA [None]
  - BLOOD PRESSURE DECREASED [None]
  - URINE OUTPUT DECREASED [None]
